FAERS Safety Report 19216121 (Version 1)
Quarter: 2021Q2

REPORT INFORMATION
  Report Type: Spontaneous
  Country: FR (occurrence: FR)
  Receive Date: 20210505
  Receipt Date: 20210505
  Transmission Date: 20210717
  Serious: Yes (Other)
  Sender: FDA-Public Use
  Company Number: FR-ROCHE-2821963

PATIENT
  Sex: Female

DRUGS (3)
  1. TAXOL [Concomitant]
     Active Substance: PACLITAXEL
  2. ENDOXAN [Concomitant]
     Active Substance: CYCLOPHOSPHAMIDE
  3. HERCEPTIN [Suspect]
     Active Substance: TRASTUZUMAB
     Indication: BREAST CANCER
     Route: 058

REACTIONS (5)
  - Phlebitis [Unknown]
  - Dizziness [Unknown]
  - Peripheral venous disease [Unknown]
  - Extrasystoles [Unknown]
  - Dyspnoea [Unknown]
